FAERS Safety Report 9330289 (Version 2)
Quarter: 2014Q1

REPORT INFORMATION
  Report Type: Report from Study
  Country: DZ (occurrence: DZ)
  Receive Date: 20130605
  Receipt Date: 20140103
  Transmission Date: 20141002
  Serious: Yes (Death)
  Sender: FDA-Public Use
  Company Number: DZ-ROCHE-1231479

PATIENT
  Age: 70 Year
  Sex: Female

DRUGS (6)
  1. TRASTUZUMAB [Suspect]
     Indication: BREAST CANCER
     Dosage: CHARGE DOSE
     Route: 042
     Dates: start: 20091208, end: 20120718
  2. TRASTUZUMAB [Suspect]
     Dosage: MAINTENANCE DOSE
     Route: 042
     Dates: start: 20091208, end: 20120718
  3. ARIMIDEX [Concomitant]
     Indication: BREAST CANCER
     Route: 065
     Dates: start: 20091208, end: 20120718
  4. AZANTAC [Concomitant]
     Dosage: BEFORE EACH CHEMOTHERAPY CURE
     Route: 065
  5. ZOPHREN [Concomitant]
     Dosage: BEFORE EACH CHEMOTHERAPY CURE
     Route: 065
  6. SOLU-MEDROL [Concomitant]
     Dosage: BEFORE EACH CHEMOTHERAPY CURE
     Route: 065

REACTIONS (2)
  - Respiratory failure [Fatal]
  - Disease progression [Fatal]
